FAERS Safety Report 14567226 (Version 1)
Quarter: 2018Q1

REPORT INFORMATION
  Report Type: Spontaneous
  Country: PL (occurrence: PL)
  Receive Date: 20180223
  Receipt Date: 20180223
  Transmission Date: 20180509
  Serious: Yes (Hospitalization, Other)
  Sender: FDA-Public Use
  Company Number: PL-AUROBINDO-AUR-APL-2018-009821

PATIENT
  Age: 62 Year
  Sex: Female

DRUGS (7)
  1. METOPROLOL. [Suspect]
     Active Substance: METOPROLOL
     Indication: ATRIAL TACHYCARDIA
     Dosage: UNK
  2. SERTRALINE [Suspect]
     Active Substance: SERTRALINE HYDROCHLORIDE
     Indication: DEPRESSION
     Dosage: 50 MG, AT NIGHT
     Route: 048
  3. VENLAFAXINE [Suspect]
     Active Substance: VENLAFAXINE HYDROCHLORIDE
     Indication: DEPRESSION
     Dosage: 150 MG, DAILY
     Route: 048
  4. TRAZODONE [Concomitant]
     Active Substance: TRAZODONE HYDROCHLORIDE
     Indication: PRODUCT USED FOR UNKNOWN INDICATION
     Dosage: UNK
     Route: 065
  5. ESCITALOPRAM [Concomitant]
     Active Substance: ESCITALOPRAM OXALATE
     Indication: PRODUCT USED FOR UNKNOWN INDICATION
     Dosage: UNK
     Route: 065
  6. ZOLPIDEM [Suspect]
     Active Substance: ZOLPIDEM\ZOLPIDEM TARTRATE
     Indication: INSOMNIA
     Dosage: 10 MG, AT BEDTIME
     Route: 048
  7. MOCLOBEMIDE [Suspect]
     Active Substance: MOCLOBEMIDE
     Indication: DEPRESSION
     Dosage: 150 MG, IN AFTERNOON
     Route: 048

REACTIONS (12)
  - Syncope [Recovered/Resolved]
  - Initial insomnia [Recovered/Resolved]
  - Insomnia [Recovered/Resolved]
  - Middle insomnia [Recovered/Resolved]
  - Electrocardiogram QT prolonged [Recovered/Resolved]
  - Drug ineffective [Unknown]
  - Drug interaction [Recovering/Resolving]
  - Palpitations [Recovered/Resolved]
  - Syncope [Unknown]
  - Atrial tachycardia [Recovered/Resolved]
  - Fatigue [Recovered/Resolved]
  - Arrhythmia [Recovering/Resolving]
